FAERS Safety Report 4863851-5 (Version None)
Quarter: 2005Q4

REPORT INFORMATION
  Report Type: 
  Country: None (occurrence: None)
  Receive Date: 20051222
  Receipt Date: 20051017
  Transmission Date: 20060501
  Serious: No
  Sender: FDA-Public Use
  Company Number: US-GLAXOSMITHKLINE-A0578476A

PATIENT
  Sex: Male

DRUGS (13)
  1. FLONASE [Suspect]
     Dosage: 2SPR PER DAY
     Route: 045
  2. LIDEX OINTMENT [Concomitant]
  3. LEXIVA [Concomitant]
  4. NORVIR [Concomitant]
  5. ASPIRIN [Concomitant]
  6. LISINOPRIL [Concomitant]
  7. NIACIN [Concomitant]
  8. PLAVIX [Concomitant]
  9. TRUVADA [Concomitant]
  10. NITROQUICK [Concomitant]
  11. LIPITOR [Concomitant]
  12. IBUPROFEN [Concomitant]
  13. HYDROXYZINE [Concomitant]

REACTIONS (1)
  - SINUS OPERATION [None]
